FAERS Safety Report 6316397-1 (Version None)
Quarter: 2009Q3

REPORT INFORMATION
  Report Type: 
  Country: None (occurrence: None)
  Receive Date: 20090820
  Receipt Date: 20090814
  Transmission Date: 20100115
  Serious: Yes (Other)
  Sender: FDA-Public Use
  Company Number: B0588741A

PATIENT
  Sex: Female

DRUGS (5)
  1. AMOXICILLIN AND CLAVULANATE POTASSIUM [Suspect]
     Route: 048
     Dates: start: 20090119, end: 20090120
  2. METRONIDAZOLE [Suspect]
     Dosage: 1200MG PER DAY
     Route: 048
     Dates: start: 20090119, end: 20090120
  3. DICLOFENAC SODIUM [Concomitant]
     Dosage: 150MG PER DAY
  4. ACETAMINOPHEN [Concomitant]
  5. CO-DYDRAMOL [Concomitant]

REACTIONS (5)
  - CHEILITIS [None]
  - ERYTHEMA [None]
  - MALAISE [None]
  - NAUSEA [None]
  - VOMITING [None]
